FAERS Safety Report 7485095-3 (Version None)
Quarter: 2011Q2

REPORT INFORMATION
  Report Type: 
  Country: None (occurrence: None)
  Receive Date: 20110517
  Receipt Date: 20101116
  Transmission Date: 20111010
  Serious: No
  Sender: FDA-Public Use
  Company Number: US-BAYER-2010-005467

PATIENT
  Age: 73 Year
  Sex: Female

DRUGS (9)
  1. ALEVE (CAPLET) [Suspect]
     Indication: SINUS HEADACHE
  2. LEVOXYL [Concomitant]
  3. ALEVE (CAPLET) [Suspect]
     Indication: ARTHRITIS
     Dosage: UNK
     Route: 048
     Dates: start: 20100101, end: 20101113
  4. PREVACID [Concomitant]
  5. ALEVE (CAPLET) [Suspect]
     Indication: ARTHRALGIA
  6. COD-LIVER OIL [Concomitant]
  7. ACETAMINOPHEN [Concomitant]
  8. ZYRTEC [Concomitant]
  9. ULTIMATE MALE FUEL [Concomitant]

REACTIONS (5)
  - FLATULENCE [None]
  - ABDOMINAL DISTENSION [None]
  - DYSPEPSIA [None]
  - OESOPHAGEAL DISCOMFORT [None]
  - HEADACHE [None]
